FAERS Safety Report 8024331-1 (Version None)
Quarter: 2012Q1

REPORT INFORMATION
  Report Type: 
  Country: None (occurrence: None)
  Receive Date: 20120103
  Receipt Date: 20111219
  Transmission Date: 20120608
  Serious: Yes (Death, Hospitalization)
  Sender: FDA-Public Use
  Company Number: WAES 1110USA00232

PATIENT
  Age: 72 Year
  Sex: Female
  Weight: 61.6892 kg

DRUGS (23)
  1. ASACOL [Concomitant]
  2. PROVENTIL [Concomitant]
  3. NEURONTIN [Concomitant]
  4. VELCADE [Suspect]
     Dosage: 1.7 MG/DAILY/IV
     Route: 042
     Dates: start: 20110913, end: 20110923
  5. POTASSIUM CHLORIDE [Concomitant]
  6. GABAPENTIN [Concomitant]
  7. LIDOCAINE [Concomitant]
  8. MINERALS (UNSPECIFIED) (+) VITAMIN [Concomitant]
  9. KLOR-CLON [Concomitant]
  10. VFEND [Concomitant]
  11. POTASSIUM CHLORIDE [Concomitant]
  12. CAP VORINOSTAT 300 MG [Suspect]
     Dosage: 300 MG/DAILY/PO
     Route: 048
     Dates: start: 20110913, end: 20110926
  13. DESYREL [Concomitant]
  14. ZOVIRAX [Concomitant]
  15. VENTOLIN [Concomitant]
  16. LIDOCAINE (+) POTASSIUM CHLORIDE [Concomitant]
  17. MAGNESIUM SULFATE [Concomitant]
  18. POTASSIUM PHOSPHATE, DIBASIC [Concomitant]
  19. SODIUM CHLORIDE [Concomitant]
  20. IMODIUM [Concomitant]
  21. CALCIUM CARBONATE [Concomitant]
  22. CHOLECALCIFEROL [Concomitant]
  23. HEPARIN [Concomitant]

REACTIONS (36)
  - DIZZINESS [None]
  - FLUID INTAKE REDUCED [None]
  - MEDICAL DEVICE DISCOMFORT [None]
  - PAIN [None]
  - HYPOPHAGIA [None]
  - FATIGUE [None]
  - ABDOMINAL PAIN [None]
  - CONTUSION [None]
  - TOXICITY TO VARIOUS AGENTS [None]
  - COUGH [None]
  - AGEUSIA [None]
  - VOMITING [None]
  - CROHN'S DISEASE [None]
  - RESTLESSNESS [None]
  - RESPIRATORY FAILURE [None]
  - HYPOXIA [None]
  - B-CELL LYMPHOMA [None]
  - MUSCULAR WEAKNESS [None]
  - DECREASED APPETITE [None]
  - ABDOMINAL DISTENSION [None]
  - CONDITION AGGRAVATED [None]
  - RESPIRATORY DISTRESS [None]
  - BRONCHOPNEUMONIA [None]
  - LUNG INFILTRATION [None]
  - TREMOR [None]
  - DYSPNOEA [None]
  - DIARRHOEA [None]
  - ABDOMINAL DISCOMFORT [None]
  - PULMONARY CONGESTION [None]
  - PNEUMONITIS [None]
  - PYREXIA [None]
  - MALNUTRITION [None]
  - SMALL INTESTINAL OBSTRUCTION [None]
  - ASTHENIA [None]
  - DEHYDRATION [None]
  - SYNCOPE [None]
